FAERS Safety Report 4339398-1 (Version None)
Quarter: 2004Q2

REPORT INFORMATION
  Report Type: 
  Country: None (occurrence: None)
  Receive Date: 20040415
  Receipt Date: 20040329
  Transmission Date: 20050107
  Serious: Yes (Hospitalization, Other)
  Sender: FDA-Public Use
  Company Number: JP-MERCK-0403USA02675

PATIENT
  Age: 85 Year
  Sex: Female

DRUGS (5)
  1. CIMETIDINE HCL [Concomitant]
     Route: 065
  2. ETODOLAC [Concomitant]
     Route: 065
  3. COZAAR [Suspect]
     Route: 048
     Dates: start: 20030728
  4. PRAVASTATIN SODIUM [Concomitant]
     Route: 065
     Dates: start: 20030728
  5. TORSEMIDE [Concomitant]
     Route: 065
     Dates: start: 20030728

REACTIONS (3)
  - ADVERSE EVENT [None]
  - CHEST DISCOMFORT [None]
  - INTERSTITIAL LUNG DISEASE [None]
